FAERS Safety Report 8643739 (Version 2)
Quarter: 2012Q4

REPORT INFORMATION
  Report Type: 
  Country: US (occurrence: US)
  Receive Date: 20120629
  Receipt Date: 20121213
  Transmission Date: 20130627
  Serious: Yes (Other)
  Sender: FDA-Public Use
  Company Number: US-ROCHE-791316

PATIENT
  Age: 24 Year
  Sex: Male
  Weight: 74.91 kg

DRUGS (6)
  1. ACCUTANE [Suspect]
     Indication: ACNE
     Route: 065
     Dates: start: 198708, end: 198801
  2. ACCUTANE [Suspect]
     Route: 065
     Dates: start: 199501, end: 199506
  3. ACCUTANE [Suspect]
     Route: 065
     Dates: start: 199702, end: 199807
  4. ACCUTANE [Suspect]
     Route: 065
     Dates: start: 199905, end: 199909
  5. ERYTHROMYCIN [Concomitant]
  6. TETRACYCLINE [Concomitant]

REACTIONS (6)
  - Colitis ulcerative [Unknown]
  - Inflammatory bowel disease [Unknown]
  - Stress [Unknown]
  - Depression [Unknown]
  - Pharyngitis [Unknown]
  - Blood triglycerides increased [Unknown]
